FAERS Safety Report 6872419-0 (Version None)
Quarter: 2010Q3

REPORT INFORMATION
  Report Type: 
  Country: None (occurrence: None)
  Receive Date: 20100723
  Receipt Date: 20090418
  Transmission Date: 20110219
  Serious: No
  Sender: FDA-Public Use
  Company Number: US-PFIZER INC-2008084856

PATIENT
  Sex: Male
  Weight: 99.773 kg

DRUGS (5)
  1. CHANTIX [Suspect]
     Indication: SMOKING CESSATION THERAPY
     Dosage: UNK
     Route: 048
     Dates: start: 20080101, end: 20090406
  2. CELEXA [Concomitant]
     Dosage: UNK
  3. SEROQUEL [Concomitant]
     Indication: PSYCHOTIC DISORDER
     Dosage: UNK
  4. KLONOPIN [Concomitant]
     Dosage: UNK
  5. CYMBALTA [Concomitant]
     Indication: DEPRESSION
     Dosage: UNK

REACTIONS (9)
  - AGGRESSION [None]
  - DEPRESSED MOOD [None]
  - DEPRESSION [None]
  - DRUG INEFFECTIVE [None]
  - EPISTAXIS [None]
  - HEADACHE [None]
  - INCORRECT DOSE ADMINISTERED [None]
  - MOOD ALTERED [None]
  - NASOPHARYNGITIS [None]
